FAERS Safety Report 8962357 (Version 1)
Quarter: 2012Q4

REPORT INFORMATION
  Report Type: Spontaneous
  Country: US (occurrence: None)
  Receive Date: 20121211
  Receipt Date: 20121211
  Transmission Date: 20130627
  Serious: No
  Sender: FDA-Public Use
  Company Number: None

PATIENT

DRUGS (1)
  1. TICE BCG LIVE [Suspect]

REACTIONS (3)
  - Device leakage [None]
  - Underdose [None]
  - No adverse event [None]
